FAERS Safety Report 11888703 (Version 1)
Quarter: 2016Q1

REPORT INFORMATION
  Report Type: Report from Study
  Country: US (occurrence: US)
  Receive Date: 20160105
  Receipt Date: 20160105
  Transmission Date: 20160526
  Serious: Yes (Hospitalization)
  Sender: FDA-Public Use
  Company Number: US-JNJFOC-20151225276

PATIENT
  Age: 83 Year
  Sex: Male

DRUGS (7)
  1. DOXAZOSIN [Concomitant]
     Active Substance: DOXAZOSIN\DOXAZOSIN MESYLATE
  2. MULTIVITAMIN [Concomitant]
     Active Substance: VITAMINS
  3. CENTRUM SILVER [Concomitant]
     Active Substance: MINERALS\VITAMINS
  4. IMBRUVICA [Suspect]
     Active Substance: IBRUTINIB
     Indication: MANTLE CELL LYMPHOMA
     Route: 048
     Dates: start: 20150901, end: 2015
  5. IPRATROPIUM [Concomitant]
     Active Substance: IPRATROPIUM
  6. MESALAMINE. [Concomitant]
     Active Substance: MESALAMINE
  7. COLESTIPOL [Concomitant]
     Active Substance: COLESTIPOL

REACTIONS (1)
  - Chronic obstructive pulmonary disease [Unknown]

NARRATIVE: CASE EVENT DATE: 20151227
